FAERS Safety Report 16327451 (Version 1)
Quarter: 2019Q2

REPORT INFORMATION
  Report Type: Spontaneous
  Country: US (occurrence: US)
  Receive Date: 20190517
  Receipt Date: 20190517
  Transmission Date: 20190711
  Serious: Yes (Other)
  Sender: FDA-Public Use
  Company Number: US-PFIZER INC-2019089205

PATIENT
  Age: 45 Year
  Sex: Male
  Weight: 86.18 kg

DRUGS (3)
  1. LYRICA [Suspect]
     Active Substance: PREGABALIN
     Dosage: UNK, 1X/DAY(IN THE NIGHT AND TAKE ONE)
  2. LYRICA [Suspect]
     Active Substance: PREGABALIN
     Indication: NEURALGIA
     Dosage: 50 MG, 4X/DAY (ONE EVERY 6 HOURS)
  3. LYRICA [Suspect]
     Active Substance: PREGABALIN
     Dosage: 75 MG, 2X/DAY [TAKING ONE CAPSULE BY MOUTH, TWICE A DAY]
     Route: 048

REACTIONS (6)
  - Rheumatoid arthritis [Unknown]
  - Product use issue [Unknown]
  - Pain [Unknown]
  - Intentional product use issue [Unknown]
  - Neuralgia [Unknown]
  - Off label use [Unknown]
